FAERS Safety Report 8991904 (Version 1)
Quarter: 2012Q4

REPORT INFORMATION
  Report Type: Report from Study
  Country: FR (occurrence: FR)
  Receive Date: 20121231
  Receipt Date: 20121231
  Transmission Date: 20130627
  Serious: Yes (Hospitalization)
  Sender: FDA-Public Use
  Company Number: FR-ROCHE-1170861

PATIENT
  Age: 59 Year
  Sex: Female
  Weight: 59 kg

DRUGS (14)
  1. RITUXIMAB [Suspect]
     Indication: RHEUMATOID ARTHRITIS
     Dosage: Date of last dose prior to SAE: 14/Dec/2006
     Route: 042
     Dates: start: 20030105
  2. METHYLPREDNISOLONE [Suspect]
     Indication: RHEUMATOID ARTHRITIS
     Dosage: Date of last dose prior to SAE: 18/Dec/2006
     Route: 042
     Dates: start: 20030105
  3. PREDNISONE [Suspect]
     Indication: RHEUMATOID ARTHRITIS
     Dosage: dose: 30 or 60 mg,
     Route: 048
     Dates: start: 20030106
  4. PREDNISONE [Suspect]
     Route: 065
     Dates: start: 20100408
  5. METHOTREXATE [Concomitant]
     Dosage: total daily dose is 15 mg/s
     Route: 065
     Dates: start: 20041009
  6. DAFALGAN [Concomitant]
     Dosage: 500 mg as required
     Route: 065
     Dates: start: 20041218
  7. FOLIC ACID [Concomitant]
     Dosage: total daily dose is 15 mg/s
     Route: 065
     Dates: start: 200203
  8. CALCIUM D3 [Concomitant]
     Dosage: 1/D
     Route: 065
     Dates: start: 200203
  9. ARESTAL [Concomitant]
     Route: 065
     Dates: start: 20040907
  10. PRAZEPAM [Concomitant]
     Route: 065
     Dates: start: 20070828
  11. PAROXETINE [Concomitant]
     Route: 065
     Dates: start: 20070718
  12. PLAVIX [Concomitant]
     Route: 065
     Dates: start: 200203
  13. PARACETAMOL [Concomitant]
     Route: 065
     Dates: start: 20061218
  14. TANGANIL [Concomitant]
     Route: 065
     Dates: start: 20061215

REACTIONS (1)
  - Cholangitis [Unknown]
